FAERS Safety Report 7741771 (Version 7)
Quarter: 2017Q1

REPORT INFORMATION
  Report Type: Report from Study
  Country: IT (occurrence: IT)
  Receive Date: 20101228
  Receipt Date: 20170103
  Transmission Date: 20170429
  Serious: Yes (Death, Other)
  Sender: FDA-Public Use
  Company Number: IT-CELGENEUS-083-21880-10122365

PATIENT

DRUGS (12)
  1. G-CSF [Concomitant]
     Active Substance: GRANULOCYTE COLONY-STIMULATING FACTOR NOS
     Indication: PROPHYLAXIS
     Route: 065
  2. REVLIMID [Suspect]
     Active Substance: LENALIDOMIDE
     Dosage: 5 MG
     Route: 048
  3. REVLIMID [Suspect]
     Active Substance: LENALIDOMIDE
     Route: 048
  4. CYCLOPHOSPHAMIDE. [Suspect]
     Active Substance: CYCLOPHOSPHAMIDE
     Indication: CHRONIC LYMPHOCYTIC LEUKAEMIA
     Dosage: 250 MG/M2
     Route: 048
  5. REVLIMID [Suspect]
     Active Substance: LENALIDOMIDE
     Dosage: 15MG
     Route: 048
  6. ENOXAPARIN [Concomitant]
     Active Substance: ENOXAPARIN
     Indication: THROMBOSIS PROPHYLAXIS
     Dosage: 4000 UNITS
     Route: 058
  7. REVLIMID [Suspect]
     Active Substance: LENALIDOMIDE
     Dosage: 15 MILLIGRAM
     Route: 048
  8. HEPARIN [Concomitant]
     Active Substance: HEPARIN SODIUM
     Indication: PRODUCT USED FOR UNKNOWN INDICATION
     Route: 065
  9. REVLIMID [Suspect]
     Active Substance: LENALIDOMIDE
     Indication: CHRONIC LYMPHOCYTIC LEUKAEMIA
     Dosage: 2.5MG
     Route: 048
  10. REVLIMID [Suspect]
     Active Substance: LENALIDOMIDE
     Route: 048
  11. FLUDARABINE [Suspect]
     Active Substance: FLUDARABINE PHOSPHATE
     Indication: CHRONIC LYMPHOCYTIC LEUKAEMIA
     Dosage: 25 MG/M2
     Route: 041
  12. ALLOPURINOL. [Concomitant]
     Active Substance: ALLOPURINOL
     Indication: PROPHYLAXIS
     Dosage: 300 MILLIGRAM
     Route: 065

REACTIONS (25)
  - Pneumonia [Unknown]
  - Neutropenia [Unknown]
  - Muscle spasms [Unknown]
  - Chronic lymphocytic leukaemia [Fatal]
  - Infection [Fatal]
  - Liver disorder [Unknown]
  - Hypertransaminasaemia [Unknown]
  - Tumour flare [Unknown]
  - Pneumonitis [Recovered/Resolved]
  - Treatment failure [Unknown]
  - Rash [Unknown]
  - Arrhythmia [Unknown]
  - Craniocerebral injury [Unknown]
  - Intestinal obstruction [Unknown]
  - Tumour lysis syndrome [Unknown]
  - Granulocytopenia [Unknown]
  - Thrombocytopenia [Unknown]
  - Fatigue [Unknown]
  - Constipation [Unknown]
  - Tremor [Unknown]
  - Varicella zoster virus infection [Unknown]
  - Nausea [Unknown]
  - Richter^s syndrome [Fatal]
  - Pyrexia [Unknown]
  - Anaemia [Unknown]
